FAERS Safety Report 7524739-4 (Version None)
Quarter: 2011Q2

REPORT INFORMATION
  Report Type: 
  Country: None (occurrence: None)
  Receive Date: 20110606
  Receipt Date: 20110513
  Transmission Date: 20111010
  Serious: Yes (Other)
  Sender: FDA-Public Use
  Company Number: US-BAYER-201033927NA

PATIENT
  Sex: Female
  Weight: 62.132 kg

DRUGS (6)
  1. YAZ [Suspect]
     Indication: CONTRACEPTION
  2. FLONASE [Concomitant]
     Indication: NASAL INFLAMMATION
  3. YAZ [Suspect]
     Indication: PREMENSTRUAL SYNDROME
     Dosage: UNK UNK, UNK
     Route: 048
     Dates: start: 20070302, end: 20100601
  4. YAZ [Suspect]
     Indication: OVARIAN CYST
  5. DIETARY SUPPLEMENTS [Concomitant]
  6. MULTIVITAMINS, COMBINATIONS [Concomitant]

REACTIONS (8)
  - CHOLECYSTITIS CHRONIC [None]
  - GALLBLADDER INJURY [None]
  - BILE DUCT STONE [None]
  - ABDOMINAL PAIN UPPER [None]
  - CHEST PAIN [None]
  - BILIARY COLIC [None]
  - CHOLELITHIASIS [None]
  - PRESYNCOPE [None]
